FAERS Safety Report 8072770-5 (Version None)
Quarter: 2012Q1

REPORT INFORMATION
  Report Type: 
  Country: None (occurrence: None)
  Receive Date: 20120126
  Receipt Date: 20120120
  Transmission Date: 20120608
  Serious: Yes (Other)
  Sender: FDA-Public Use
  Company Number: US-JNJFOC-20120110094

PATIENT
  Age: 76 Year
  Sex: Male
  Weight: 88.45 kg

DRUGS (3)
  1. ALL OTHER THERAPEUTIC PRODUCTS [Concomitant]
     Indication: PRODUCT USED FOR UNKNOWN INDICATION
     Route: 065
  2. METHYL SALICYLATE MENTHOLCAMPHOR ONT [Suspect]
     Indication: PAIN
     Dosage: ABOUT A QUARTER-SIZED AMOUNT TO EACH THIGH AND A SMALLER AMOUNT TO HIS LOWER BACK
     Route: 061
     Dates: start: 20120118, end: 20120119
  3. NOVOLOG [Concomitant]
     Indication: DIABETES MELLITUS
     Dosage: 22 UNITS, FOR 15 YEARS
     Route: 065
     Dates: start: 19970101

REACTIONS (1)
  - BLOOD GLUCOSE INCREASED [None]
